FAERS Safety Report 6994648-8 (Version None)
Quarter: 2010Q3

REPORT INFORMATION
  Report Type: 
  Country: None (occurrence: None)
  Receive Date: 20100915
  Receipt Date: 20100915
  Transmission Date: 20110219
  Serious: Yes (Life-Threatening, Hospitalization, Disabling, Other)
  Sender: FDA-Public Use
  Company Number: None

PATIENT
  Age: 54 Year
  Sex: Male
  Weight: 108.8633 kg

DRUGS (2)
  1. RECLAST [Suspect]
     Indication: OSTEOPOROSIS
     Dosage: YEARLY IV DRIP
     Route: 041
     Dates: start: 20080131, end: 20100128
  2. RECLAST [Suspect]
     Indication: OSTEOPOROSIS
     Dosage: YEARLY IV DRIP
     Route: 041
     Dates: start: 20090114, end: 20100128

REACTIONS (14)
  - ASTHMA [None]
  - BLOOD GLUCOSE INCREASED [None]
  - CLOSTRIDIUM DIFFICILE COLITIS [None]
  - EYE INFECTION [None]
  - FATIGUE [None]
  - FUNGAL INFECTION [None]
  - IMMUNE SYSTEM DISORDER [None]
  - IMPAIRED WORK ABILITY [None]
  - INFLUENZA LIKE ILLNESS [None]
  - MIGRAINE [None]
  - PAIN [None]
  - PNEUMONIA [None]
  - SINUSITIS [None]
  - VIITH NERVE PARALYSIS [None]
